FAERS Safety Report 11369193 (Version 2)
Quarter: 2015Q3

REPORT INFORMATION
  Report Type: Report from Study
  Country: ES (occurrence: ES)
  Receive Date: 20150812
  Receipt Date: 20150911
  Transmission Date: 20151125
  Serious: Yes (Hospitalization)
  Sender: FDA-Public Use
  Company Number: ES-ROCHE-1619154

PATIENT
  Age: 64 Year
  Sex: Male
  Weight: 78.5 kg

DRUGS (3)
  1. RO 6895882 (CEA-IL2V) [Suspect]
     Active Substance: INVESTIGATIONAL PRODUCT
     Indication: NEOPLASM
     Dosage: DOSE: 10 AND 20 MG?THE LAST DOSE PRIOR TO THE HYPOTENSION WAS ADMINISTERED ON 04/AUG/2015
     Route: 042
     Dates: start: 20150722
  2. CODEISAN [Concomitant]
  3. OBINUTUZUMAB [Suspect]
     Active Substance: OBINUTUZUMAB
     Indication: NEOPLASM
     Dosage: THE LAST DOSE PRIOR TO THE HYPOTENSION WAS ADMINISTERED ON 09/JUL/2015
     Route: 042
     Dates: start: 20150708

REACTIONS (1)
  - Hypotension [Recovering/Resolving]

NARRATIVE: CASE EVENT DATE: 20150805
